FAERS Safety Report 5102419-2 (Version None)
Quarter: 2006Q3

REPORT INFORMATION
  Report Type: 
  Country: None (occurrence: None)
  Receive Date: 20060907
  Receipt Date: 20060818
  Transmission Date: 20061208
  Serious: Yes (Hospitalization, Other)
  Sender: FDA-Public Use
  Company Number: US200606003558

PATIENT
  Age: 56 Year
  Sex: Female
  Weight: 98.9 kg

DRUGS (3)
  1. ZYPREXA [Suspect]
     Indication: ANXIETY
     Dosage: MG, ORAL
     Route: 048
     Dates: start: 19960101, end: 20000101
  2. DEPAKOTE [Concomitant]
  3. PAXIL [Concomitant]

REACTIONS (9)
  - ANAEMIA MEGALOBLASTIC [None]
  - BLOOD CHOLESTEROL ABNORMAL [None]
  - BLOOD TRIGLYCERIDES INCREASED [None]
  - DIABETES MELLITUS [None]
  - HYPERGLYCAEMIC HYPEROSMOLAR NONKETOTIC SYNDROME [None]
  - HYPERLIPIDAEMIA [None]
  - LISTLESS [None]
  - VISION BLURRED [None]
  - WEIGHT DECREASED [None]
